FAERS Safety Report 13731860 (Version 1)
Quarter: 2017Q3

REPORT INFORMATION
  Report Type: Spontaneous
  Country: US (occurrence: US)
  Receive Date: 20170707
  Receipt Date: 20170707
  Transmission Date: 20171127
  Serious: No
  Sender: FDA-Public Use
  Company Number: US-JNJFOC-20160717239

PATIENT
  Age: 46 Year
  Sex: Female
  Weight: 88.91 kg

DRUGS (3)
  1. INVEGA TRINZA [Suspect]
     Active Substance: PALIPERIDONE PALMITATE
     Indication: SCHIZOPHRENIA
     Route: 030
     Dates: start: 20160608
  2. ANTABUSE [Concomitant]
     Active Substance: DISULFIRAM
     Route: 065
  3. LEXAPRO [Concomitant]
     Active Substance: ESCITALOPRAM OXALATE
     Route: 048

REACTIONS (2)
  - Galactorrhoea [Not Recovered/Not Resolved]
  - Blood prolactin abnormal [Unknown]

NARRATIVE: CASE EVENT DATE: 2016
